FAERS Safety Report 8271966-7 (Version None)
Quarter: 2012Q2

REPORT INFORMATION
  Report Type: 
  Country: None (occurrence: None)
  Receive Date: 20120410
  Receipt Date: 20120328
  Transmission Date: 20120825
  Serious: Yes (Life-Threatening, Hospitalization)
  Sender: FDA-Public Use
  Company Number: KR-MYLANLABS-2012S1006856

PATIENT
  Age: 56 Year
  Sex: Female

DRUGS (8)
  1. ENALAPRIL MALEATE [Suspect]
     Indication: HYPERTENSION
     Dosage: 10MG
     Route: 065
  2. DOXORUBICIN HCL [Concomitant]
     Indication: BREAST CANCER
     Dosage: FIRST CYCLE 90MG
     Route: 065
  3. PROPRANOLOL [Concomitant]
     Dosage: 40MG
     Route: 065
  4. DEXAMETHASONE [Concomitant]
     Indication: ANTIEMETIC SUPPORTIVE CARE
     Route: 065
  5. CYCLOPHOSPHAMIDE [Suspect]
     Indication: BREAST CANCER
     Dosage: FIRST CYCLE 900MG
     Route: 065
  6. NIFEDIPINE [Concomitant]
     Dosage: 30MG
     Route: 065
  7. ASPIRIN [Concomitant]
     Route: 065
  8. PALONOSETRON [Concomitant]
     Indication: ANTIEMETIC SUPPORTIVE CARE
     Route: 065

REACTIONS (4)
  - CONVULSION [None]
  - FLUID RETENTION [None]
  - HYPONATRAEMIA [None]
  - DEPRESSED LEVEL OF CONSCIOUSNESS [None]
